FAERS Safety Report 7114193-9 (Version None)
Quarter: 2010Q4

REPORT INFORMATION
  Report Type: 
  Country: None (occurrence: None)
  Receive Date: 20101119
  Receipt Date: 20101108
  Transmission Date: 20110411
  Serious: Yes (Hospitalization)
  Sender: FDA-Public Use
  Company Number: US-JNJFOC-20101104235

PATIENT
  Sex: Female
  Weight: 64.1 kg

DRUGS (7)
  1. EXTRA STRENGTH TYLENOL [Suspect]
     Route: 065
  2. EXTRA STRENGTH TYLENOL [Suspect]
     Indication: PRODUCT USED FOR UNKNOWN INDICATION
     Route: 065
  3. FERROUS SULFATE [Concomitant]
     Indication: IRON DEFICIENCY ANAEMIA
  4. CELEXA [Concomitant]
     Indication: DEPRESSION
  5. DARUNAVIR [Concomitant]
     Indication: HIV INFECTION
     Route: 048
  6. RITONAVIR [Concomitant]
     Indication: HIV INFECTION
     Route: 048
  7. EMTRICITABINE/TENOFOVIR DISOPROXIL FUMARATE [Concomitant]
     Indication: HIV INFECTION
     Route: 048

REACTIONS (3)
  - HEADACHE [None]
  - INTENTIONAL OVERDOSE [None]
  - SUICIDE ATTEMPT [None]
